FAERS Safety Report 4821622-X (Version None)
Quarter: 2005Q4

REPORT INFORMATION
  Report Type: 
  Country: None (occurrence: None)
  Receive Date: 20051107
  Receipt Date: 20050707
  Transmission Date: 20060501
  Serious: Yes (Hospitalization, Disabling, Other)
  Sender: FDA-Public Use
  Company Number: US-MERCK-0507USA01235

PATIENT
  Age: 47 Year
  Sex: Female
  Weight: 73 kg

DRUGS (13)
  1. VIOXX [Suspect]
     Indication: MIXED CONNECTIVE TISSUE DISEASE
     Route: 048
     Dates: start: 19991202, end: 20040930
  2. VIOXX [Suspect]
     Indication: ARTHRITIS
     Route: 048
     Dates: start: 19991202, end: 20040930
  3. PREDNISONE [Concomitant]
     Indication: MIXED CONNECTIVE TISSUE DISEASE
     Route: 065
  4. FOLIC ACID [Concomitant]
     Indication: VITAMIN SUPPLEMENTATION
     Route: 065
  5. NEURONTIN [Concomitant]
     Indication: NEURALGIA
     Route: 065
  6. DYAZIDE [Concomitant]
     Indication: SWELLING
     Route: 065
  7. METHOTREXATE [Concomitant]
     Indication: MIXED CONNECTIVE TISSUE DISEASE
     Route: 065
  8. PROZAC [Concomitant]
     Indication: DEPRESSION
     Route: 065
  9. XANAX [Concomitant]
     Indication: ANXIETY
     Route: 065
  10. XANAX [Concomitant]
     Indication: MUSCLE RELAXANT THERAPY
     Route: 065
  11. VERAPAMIL [Concomitant]
     Route: 065
  12. VERAPAMIL [Concomitant]
     Route: 065
  13. TYLENOL (CAPLET) [Concomitant]
     Indication: PAIN
     Route: 065

REACTIONS (20)
  - ABDOMINAL DISCOMFORT [None]
  - ASTHENIA [None]
  - CELLULITIS [None]
  - CEREBROVASCULAR ACCIDENT [None]
  - CONSTIPATION [None]
  - DEPRESSION [None]
  - DYSPAREUNIA [None]
  - DYSPNOEA [None]
  - DYSURIA [None]
  - ENCEPHALITIS [None]
  - EPIGASTRIC DISCOMFORT [None]
  - HEADACHE [None]
  - MEMORY IMPAIRMENT [None]
  - MIGRAINE [None]
  - PAIN [None]
  - RENAL FAILURE [None]
  - SYSTEMIC LUPUS ERYTHEMATOSUS [None]
  - TEMPORAL ARTERITIS [None]
  - TRANSIENT ISCHAEMIC ATTACK [None]
  - WEIGHT DECREASED [None]
